FAERS Safety Report 20998360 (Version 3)
Quarter: 2022Q3

REPORT INFORMATION
  Report Type: Report from Study
  Country: JP (occurrence: JP)
  Receive Date: 20220623
  Receipt Date: 20220825
  Transmission Date: 20221026
  Serious: Yes (Hospitalization)
  Sender: FDA-Public Use
  Company Number: JP-NOVARTISPH-NVSJ2022JP092514

PATIENT
  Age: 37 Year
  Sex: Female
  Weight: 52.3 kg

DRUGS (9)
  1. ILARIS [Suspect]
     Active Substance: CANAKINUMAB
     Indication: Familial mediterranean fever
     Dosage: 150 MG
     Route: 058
     Dates: start: 20211210, end: 20211210
  2. ILARIS [Suspect]
     Active Substance: CANAKINUMAB
     Dosage: 150 MG
     Route: 058
     Dates: start: 20220107, end: 20220107
  3. ILARIS [Suspect]
     Active Substance: CANAKINUMAB
     Dosage: 150 MG
     Route: 058
     Dates: start: 20220204, end: 20220204
  4. ILARIS [Suspect]
     Active Substance: CANAKINUMAB
     Dosage: 150 MG
     Route: 058
     Dates: start: 20220304, end: 20220304
  5. ILARIS [Suspect]
     Active Substance: CANAKINUMAB
     Dosage: 150 MG
     Route: 058
     Dates: start: 20220406, end: 20220406
  6. COLCHICINE [Concomitant]
     Active Substance: COLCHICINE
     Indication: Familial mediterranean fever
     Dosage: 1.5 MG
     Route: 048
     Dates: end: 20210509
  7. COLCHICINE [Concomitant]
     Active Substance: COLCHICINE
     Dosage: 2 MG
     Route: 048
     Dates: start: 20210510, end: 20220106
  8. COLCHICINE [Concomitant]
     Active Substance: COLCHICINE
     Dosage: 1 MG
     Route: 048
     Dates: start: 20220107, end: 20220118
  9. COLCHICINE [Concomitant]
     Active Substance: COLCHICINE
     Dosage: 2 MG
     Route: 048
     Dates: start: 20220119

REACTIONS (6)
  - Small intestinal ulcer haemorrhage [Recovered/Resolved]
  - Pyrexia [Recovered/Resolved]
  - Abdominal pain [Recovered/Resolved]
  - Small intestinal ulcer haemorrhage [Recovered/Resolved]
  - Abdominal pain [Unknown]
  - Iron deficiency anaemia [Recovering/Resolving]

NARRATIVE: CASE EVENT DATE: 20220204
